FAERS Safety Report 12756299 (Version 1)
Quarter: 2016Q3

REPORT INFORMATION
  Report Type: Report from Study
  Country: DE (occurrence: DE)
  Receive Date: 20160916
  Receipt Date: 20160916
  Transmission Date: 20161109
  Serious: Yes (Hospitalization)
  Sender: FDA-Public Use
  Company Number: US-ASTRAZENECA-2016SE97962

PATIENT
  Age: 1 Year
  Sex: Male
  Weight: 1.6 kg

DRUGS (6)
  1. PALIVIZUMAB [Suspect]
     Active Substance: PALIVIZUMAB
     Indication: PREMATURE BABY
     Dosage: 100.0MG ONCE/SINGLE ADMINISTRATION
     Route: 030
     Dates: start: 20091207, end: 20091207
  2. PALIVIZUMAB [Suspect]
     Active Substance: PALIVIZUMAB
     Indication: PREMATURE BABY
     Dosage: 100.0MG ONCE/SINGLE ADMINISTRATION
     Route: 030
     Dates: start: 20100105, end: 20100105
  3. PALIVIZUMAB [Suspect]
     Active Substance: PALIVIZUMAB
     Indication: PREMATURE BABY
     Dosage: 100.0MG ONCE/SINGLE ADMINISTRATION
     Route: 030
     Dates: start: 20100204, end: 20100204
  4. PALIVIZUMAB [Suspect]
     Active Substance: PALIVIZUMAB
     Indication: PREMATURE BABY
     Dosage: 100.0MG ONCE/SINGLE ADMINISTRATION
     Route: 030
     Dates: start: 20091104, end: 20091104
  5. PALIVIZUMAB [Suspect]
     Active Substance: PALIVIZUMAB
     Indication: PREMATURE BABY
     Dosage: 100.0MG ONCE/SINGLE ADMINISTRATION
     Route: 030
     Dates: start: 20091010, end: 20091010
  6. PALIVIZUMAB [Suspect]
     Active Substance: PALIVIZUMAB
     Indication: PREMATURE BABY
     Dosage: 100.0MG ONCE/SINGLE ADMINISTRATION
     Route: 030
     Dates: start: 20100213, end: 20100213

REACTIONS (1)
  - Pneumonia [Recovered/Resolved]

NARRATIVE: CASE EVENT DATE: 20100217
